FAERS Safety Report 6788928-9 (Version None)
Quarter: 2010Q2

REPORT INFORMATION
  Report Type: 
  Country: None (occurrence: None)
  Receive Date: 20100623
  Receipt Date: 20080531
  Transmission Date: 20101027
  Serious: No
  Sender: FDA-Public Use
  Company Number: US-PFIZER INC-2008047080

PATIENT
  Sex: Female
  Weight: 45.909 kg

DRUGS (2)
  1. XALATAN [Suspect]
     Indication: GLAUCOMA
     Dates: start: 20080501
  2. VERAPAMIL [Interacting]
     Indication: HYPERTENSION

REACTIONS (3)
  - DRUG INTERACTION [None]
  - INSOMNIA [None]
  - POLLAKIURIA [None]
